FAERS Safety Report 7523155-9 (Version None)
Quarter: 2011Q2

REPORT INFORMATION
  Report Type: 
  Country: None (occurrence: None)
  Receive Date: 20110525
  Receipt Date: 20110511
  Transmission Date: 20111010
  Serious: Yes (Life-Threatening, Hospitalization)
  Sender: FDA-Public Use
  Company Number: TCI2011A02778

PATIENT
  Age: 59 Year
  Sex: Male

DRUGS (8)
  1. ACTOS [Suspect]
     Indication: TYPE 2 DIABETES MELLITUS
     Dosage: 30 MG (30 MG,1 D) PER ORAL, 15 MG (25 MG, 1 D) 1) PER ORAL
     Route: 048
     Dates: start: 20080110
  2. ANTIHYPERTENSIVES [Concomitant]
  3. BASEN (VOOLIBOSE) [Concomitant]
  4. BLOPRESS (CANDESARTAN  CILEXETIL) [Concomitant]
  5. METFORMIN HYDROCHLORIDE [Concomitant]
  6. LIPITOR [Concomitant]
  7. DILTIAZEM HYDROCHLORIDE [Concomitant]
  8. AMARYL [Concomitant]

REACTIONS (3)
  - CORONARY ARTERY STENOSIS [None]
  - ANGINA PECTORIS [None]
  - CORONARY ARTERY OCCLUSION [None]
